FAERS Safety Report 25300739 (Version 1)
Quarter: 2025Q2

REPORT INFORMATION
  Report Type: Spontaneous
  Country: TW (occurrence: TW)
  Receive Date: 20250512
  Receipt Date: 20250512
  Transmission Date: 20250717
  Serious: Yes (Other)
  Sender: PHARMAESSENTIA
  Company Number: TW-PHARMAESSENTIA-TW-2025-PEC-006080

PATIENT
  Age: 48 Year
  Sex: Male

DRUGS (54)
  1. BESREMI [Suspect]
     Active Substance: ROPEGINTERFERON ALFA-2B-NJFT
     Indication: Polycythaemia vera
     Dosage: 250 MCG, Q2W
     Route: 058
     Dates: start: 20210409
  2. BESREMI [Suspect]
     Active Substance: ROPEGINTERFERON ALFA-2B-NJFT
     Dosage: 250 MCG, Q2W
     Route: 058
     Dates: start: 20210423
  3. BESREMI [Suspect]
     Active Substance: ROPEGINTERFERON ALFA-2B-NJFT
     Dosage: 500 MCG, Q2W
     Route: 058
     Dates: start: 20210507
  4. BESREMI [Suspect]
     Active Substance: ROPEGINTERFERON ALFA-2B-NJFT
     Dosage: 500 MCG, Q2W
     Route: 058
     Dates: start: 20210521
  5. BESREMI [Suspect]
     Active Substance: ROPEGINTERFERON ALFA-2B-NJFT
     Dosage: 500 MCG, Q2W
     Route: 058
     Dates: start: 20210604
  6. BESREMI [Suspect]
     Active Substance: ROPEGINTERFERON ALFA-2B-NJFT
     Dosage: 500 MCG, Q2W
     Route: 058
     Dates: start: 20210618
  7. BESREMI [Suspect]
     Active Substance: ROPEGINTERFERON ALFA-2B-NJFT
     Dosage: 500 MCG, Q2W
     Route: 058
     Dates: start: 20210702
  8. BESREMI [Suspect]
     Active Substance: ROPEGINTERFERON ALFA-2B-NJFT
     Dosage: 500 MCG, Q2W
     Route: 058
     Dates: start: 20210716
  9. BESREMI [Suspect]
     Active Substance: ROPEGINTERFERON ALFA-2B-NJFT
     Dosage: 500 MCG, Q2W
     Route: 058
     Dates: start: 20210813
  10. BESREMI [Suspect]
     Active Substance: ROPEGINTERFERON ALFA-2B-NJFT
     Dosage: 500 MCG, Q2W
     Route: 058
     Dates: start: 20210827
  11. BESREMI [Suspect]
     Active Substance: ROPEGINTERFERON ALFA-2B-NJFT
     Dosage: 500 MCG, Q2W
     Route: 058
     Dates: start: 20210917
  12. BESREMI [Suspect]
     Active Substance: ROPEGINTERFERON ALFA-2B-NJFT
     Dosage: 250 MCG, Q2W
     Route: 058
     Dates: start: 20211008
  13. BESREMI [Suspect]
     Active Substance: ROPEGINTERFERON ALFA-2B-NJFT
     Dosage: 250 MCG, Q2W
     Route: 058
     Dates: start: 20211022
  14. BESREMI [Suspect]
     Active Substance: ROPEGINTERFERON ALFA-2B-NJFT
     Dosage: 250 MCG, Q2W
     Route: 058
     Dates: start: 20211112
  15. BESREMI [Suspect]
     Active Substance: ROPEGINTERFERON ALFA-2B-NJFT
     Dosage: 250 MCG, Q2W
     Route: 058
     Dates: start: 20211126
  16. BESREMI [Suspect]
     Active Substance: ROPEGINTERFERON ALFA-2B-NJFT
     Dosage: 250 MCG, Q2W
     Route: 058
     Dates: start: 20211210
  17. BESREMI [Suspect]
     Active Substance: ROPEGINTERFERON ALFA-2B-NJFT
     Dosage: 250 MCG, Q2W
     Route: 058
     Dates: start: 20211224
  18. BESREMI [Suspect]
     Active Substance: ROPEGINTERFERON ALFA-2B-NJFT
     Dosage: 250 MCG, Q2W
     Route: 058
     Dates: start: 20220107
  19. BESREMI [Suspect]
     Active Substance: ROPEGINTERFERON ALFA-2B-NJFT
     Dosage: 250 MCG, Q2W
     Route: 058
     Dates: start: 20220121
  20. BESREMI [Suspect]
     Active Substance: ROPEGINTERFERON ALFA-2B-NJFT
     Dosage: 250 MCG, Q2W
     Route: 058
     Dates: start: 20220205
  21. BESREMI [Suspect]
     Active Substance: ROPEGINTERFERON ALFA-2B-NJFT
     Dosage: 250 MCG, Q2W
     Route: 058
     Dates: start: 20220218
  22. BESREMI [Suspect]
     Active Substance: ROPEGINTERFERON ALFA-2B-NJFT
     Dosage: 250 MCG, Q2W
     Route: 058
     Dates: start: 20220304
  23. BESREMI [Suspect]
     Active Substance: ROPEGINTERFERON ALFA-2B-NJFT
     Dosage: 250 MCG, Q2W
     Route: 058
     Dates: start: 20220318
  24. BESREMI [Suspect]
     Active Substance: ROPEGINTERFERON ALFA-2B-NJFT
     Dosage: 250 MCG, EVERY 4 WEEKS
     Route: 058
     Dates: start: 20220401
  25. BESREMI [Suspect]
     Active Substance: ROPEGINTERFERON ALFA-2B-NJFT
     Dosage: 250 MCG, EVERY 4 WEEKS
     Route: 058
     Dates: start: 20220429
  26. BESREMI [Suspect]
     Active Substance: ROPEGINTERFERON ALFA-2B-NJFT
     Dosage: 250 MCG, EVERY 4 WEEKS
     Route: 058
     Dates: start: 20220527
  27. BESREMI [Suspect]
     Active Substance: ROPEGINTERFERON ALFA-2B-NJFT
     Dosage: 250 MCG, EVERY 4 WEEKS
     Route: 058
     Dates: start: 20220701
  28. BESREMI [Suspect]
     Active Substance: ROPEGINTERFERON ALFA-2B-NJFT
     Dosage: 250 MCG, EVERY 4 WEEKS
     Route: 058
     Dates: start: 20220804
  29. BESREMI [Suspect]
     Active Substance: ROPEGINTERFERON ALFA-2B-NJFT
     Dosage: 250 MCG, EVERY 4 WEEKS
     Route: 058
     Dates: start: 20220908
  30. BESREMI [Suspect]
     Active Substance: ROPEGINTERFERON ALFA-2B-NJFT
     Dosage: 250 MCG, EVERY 4 WEEKS
     Route: 058
     Dates: start: 20221006
  31. BESREMI [Suspect]
     Active Substance: ROPEGINTERFERON ALFA-2B-NJFT
     Dosage: 250 MCG, EVERY 4 WEEKS
     Route: 058
     Dates: start: 20221102
  32. BESREMI [Suspect]
     Active Substance: ROPEGINTERFERON ALFA-2B-NJFT
     Dosage: 250 MCG, EVERY 4 WEEKS
     Route: 058
     Dates: start: 20221201
  33. BESREMI [Suspect]
     Active Substance: ROPEGINTERFERON ALFA-2B-NJFT
     Dosage: 250 MCG, EVERY 4 WEEKS
     Route: 058
     Dates: start: 20230103
  34. BESREMI [Suspect]
     Active Substance: ROPEGINTERFERON ALFA-2B-NJFT
     Dosage: 250 MCG, EVERY 4 WEEKS
     Route: 058
     Dates: start: 20230201
  35. BESREMI [Suspect]
     Active Substance: ROPEGINTERFERON ALFA-2B-NJFT
     Dosage: 250 MCG, EVERY 4 WEEKS
     Route: 058
     Dates: start: 20230301
  36. BESREMI [Suspect]
     Active Substance: ROPEGINTERFERON ALFA-2B-NJFT
     Route: 058
     Dates: start: 20230314
  37. BESREMI [Suspect]
     Active Substance: ROPEGINTERFERON ALFA-2B-NJFT
     Route: 058
     Dates: start: 20230406
  38. BESREMI [Suspect]
     Active Substance: ROPEGINTERFERON ALFA-2B-NJFT
     Route: 058
     Dates: start: 20230516
  39. BESREMI [Suspect]
     Active Substance: ROPEGINTERFERON ALFA-2B-NJFT
     Route: 058
     Dates: start: 20230523
  40. BESREMI [Suspect]
     Active Substance: ROPEGINTERFERON ALFA-2B-NJFT
     Route: 058
     Dates: start: 20230625
  41. BESREMI [Suspect]
     Active Substance: ROPEGINTERFERON ALFA-2B-NJFT
     Route: 058
     Dates: start: 20230813
  42. BESREMI [Suspect]
     Active Substance: ROPEGINTERFERON ALFA-2B-NJFT
     Route: 058
     Dates: start: 20231001
  43. BESREMI [Suspect]
     Active Substance: ROPEGINTERFERON ALFA-2B-NJFT
     Route: 058
     Dates: start: 20231126
  44. BESREMI [Suspect]
     Active Substance: ROPEGINTERFERON ALFA-2B-NJFT
     Route: 058
     Dates: start: 20240107
  45. BESREMI [Suspect]
     Active Substance: ROPEGINTERFERON ALFA-2B-NJFT
     Route: 058
     Dates: start: 20240225
  46. BESREMI [Suspect]
     Active Substance: ROPEGINTERFERON ALFA-2B-NJFT
     Route: 058
     Dates: start: 20240428
  47. BESREMI [Suspect]
     Active Substance: ROPEGINTERFERON ALFA-2B-NJFT
     Route: 058
     Dates: start: 20240505
  48. BESREMI [Suspect]
     Active Substance: ROPEGINTERFERON ALFA-2B-NJFT
     Route: 058
     Dates: start: 20240715
  49. BESREMI [Suspect]
     Active Substance: ROPEGINTERFERON ALFA-2B-NJFT
     Route: 058
     Dates: start: 20240928
  50. BESREMI [Suspect]
     Active Substance: ROPEGINTERFERON ALFA-2B-NJFT
     Route: 058
     Dates: start: 20241220
  51. PLAVIX [Concomitant]
     Active Substance: CLOPIDOGREL BISULFATE
     Indication: Thrombosis prophylaxis
     Route: 048
  52. OXETHAZAINE [Concomitant]
     Active Substance: OXETHAZAINE
     Indication: Dyspepsia
     Dosage: 1 DOSAGE FORM, TID
     Route: 048
  53. Vioment [Concomitant]
     Indication: Abdominal distension
     Dosage: 2 DOSAGE FORM, TID
     Route: 048
  54. MEPENZOLATE BROMIDE [Concomitant]
     Active Substance: MEPENZOLATE BROMIDE
     Indication: Abdominal distension
     Dosage: 1 DOSAGE FORM, TID
     Route: 048

REACTIONS (9)
  - Gastroenteritis [Recovered/Resolved]
  - Erectile dysfunction [Recovering/Resolving]
  - Cardiac dysfunction [Recovering/Resolving]
  - Neuropathy peripheral [Unknown]
  - Chest discomfort [Recovering/Resolving]
  - Dyspnoea exertional [Recovering/Resolving]
  - Nocturia [Recovering/Resolving]
  - Fatigue [Recovering/Resolving]
  - Nausea [Recovering/Resolving]

NARRATIVE: CASE EVENT DATE: 20210101
